FAERS Safety Report 6098318-2 (Version None)
Quarter: 2009Q1

REPORT INFORMATION
  Report Type: 
  Country: None (occurrence: None)
  Receive Date: 20090302
  Receipt Date: 20090217
  Transmission Date: 20090719
  Serious: Yes (Other)
  Sender: FDA-Public Use
  Company Number: CN-PFIZER INC-2009174825

PATIENT

DRUGS (2)
  1. ZOLOFT [Suspect]
     Indication: AFFECTIVE DISORDER
     Dosage: 25 MG
     Route: 048
     Dates: start: 20080819, end: 20090217
  2. ZELDOX [Suspect]
     Indication: SCHIZOPHRENIA
     Dosage: 40 MG, 2X/DAY
     Route: 048
     Dates: start: 20080501

REACTIONS (2)
  - AFFECTIVE DISORDER [None]
  - TARDIVE DYSKINESIA [None]
